FAERS Safety Report 13511132 (Version 1)
Quarter: 2017Q2

REPORT INFORMATION
  Report Type: Spontaneous
  Country: US (occurrence: US)
  Receive Date: 20170503
  Receipt Date: 20170503
  Transmission Date: 20170830
  Serious: Yes (Other)
  Sender: FDA-Public Use
  Company Number: US-LUNDBECK-DKLU2030105

PATIENT
  Sex: Female

DRUGS (1)
  1. SABRIL [Suspect]
     Active Substance: VIGABATRIN
     Indication: PETIT MAL EPILEPSY
     Dosage: DOSE VARIED OVER TIME TO TIME BASED
     Route: 048
     Dates: start: 20151214

REACTIONS (2)
  - Retinogram abnormal [Unknown]
  - Therapeutic response decreased [Unknown]
